FAERS Safety Report 6208508-3 (Version None)
Quarter: 2009Q2

REPORT INFORMATION
  Report Type: 
  Country: None (occurrence: None)
  Receive Date: 20090529
  Receipt Date: 20090528
  Transmission Date: 20091009
  Serious: Yes (Hospitalization)
  Sender: FDA-Public Use
  Company Number: US-ROXANE LABORATORIES, INC.-2009-RO-00529RO

PATIENT
  Sex: Male

DRUGS (14)
  1. PREDNISONE [Suspect]
     Indication: PROSTATE CANCER
     Dosage: 10MG
     Route: 048
     Dates: start: 20090414
  2. ENZASTAURIN [Suspect]
     Indication: PROSTATE CANCER
     Route: 048
     Dates: start: 20090413
  3. DOCETAXEL [Suspect]
     Indication: PROSTATE CANCER
     Route: 042
     Dates: start: 20090414
  4. DEXAMETHASONE 4MG TAB [Concomitant]
     Indication: PREMEDICATION
     Dates: start: 20090414
  5. LUPRON [Concomitant]
  6. ZOMETA [Concomitant]
     Dates: start: 20090310
  7. VESICARE [Concomitant]
  8. DILTIAZEM HCL [Concomitant]
  9. MICARDIS [Concomitant]
  10. LIPITOR [Concomitant]
  11. AMIODARONE HCL [Concomitant]
  12. ANZEMET [Concomitant]
     Indication: PREMEDICATION
     Dates: start: 20090414
  13. VITAMINS [Concomitant]
  14. NEULASTA [Concomitant]
     Dates: start: 20090506, end: 20090506

REACTIONS (4)
  - ABDOMINAL DISTENSION [None]
  - FAECAL VOMITING [None]
  - ILEUS [None]
  - NEUTROPENIA [None]
